FAERS Safety Report 4636265-0 (Version None)
Quarter: 2005Q2

REPORT INFORMATION
  Report Type: 
  Country: None (occurrence: None)
  Receive Date: 20050415
  Receipt Date: 20040423
  Transmission Date: 20051028
  Serious: No
  Sender: FDA-Public Use
  Company Number: US-BRISTOL-MYERS SQUIBB COMPANY-12570990

PATIENT
  Age: 68 Year
  Sex: Female

DRUGS (7)
  1. CARBOPLATIN [Suspect]
     Indication: LUNG NEOPLASM MALIGNANT
     Dosage: 150 MG: 17-NOV, 24-NOV, 5-DEC, 22-DEC-03, 2-JAN, 14-JAN, 28-JAN, 3-FEB, 17-FEB, 17-APR, 19-APR-04
     Route: 042
     Dates: start: 20040128, end: 20040128
  2. TAXOTERE [Suspect]
     Indication: LUNG NEOPLASM MALIGNANT
     Dosage: 3 WEEKS ON, 1 WEEK OFF
     Route: 042
     Dates: start: 20031117
  3. LANTUS [Concomitant]
  4. HUMALOG [Concomitant]
  5. METFORMIN HCL [Concomitant]
  6. PAXIL [Concomitant]
  7. VITAMIN B COMPLEX CAP [Concomitant]

REACTIONS (1)
  - ONYCHOLYSIS [None]
